FAERS Safety Report 20554965 (Version 4)
Quarter: 2022Q2

REPORT INFORMATION
  Report Type: Spontaneous
  Country: US (occurrence: US)
  Receive Date: 20220304
  Receipt Date: 20220526
  Transmission Date: 20220720
  Serious: Yes (Other)
  Sender: FDA-Public Use
  Company Number: US-PFIZER INC-202200349111

PATIENT
  Age: 80 Year
  Sex: Male

DRUGS (4)
  1. INLYTA [Suspect]
     Active Substance: AXITINIB
     Dosage: UNK
     Dates: start: 20220216, end: 202202
  2. INLYTA [Suspect]
     Active Substance: AXITINIB
     Dosage: UNK
     Dates: end: 20220328
  3. INLYTA [Suspect]
     Active Substance: AXITINIB
     Dosage: 5 MG, CYCLIC (BID EVERY OTHER DAY)
  4. INLYTA [Suspect]
     Active Substance: AXITINIB
     Dosage: 1 MG, 2X/DAY

REACTIONS (11)
  - Urinary retention [Recovering/Resolving]
  - Cheilitis [Recovering/Resolving]
  - Glossodynia [Recovering/Resolving]
  - Pain in extremity [Recovering/Resolving]
  - Urine flow decreased [Recovering/Resolving]
  - Skin exfoliation [Unknown]
  - Oral contusion [Unknown]
  - Erythema [Unknown]
  - Off label use [Unknown]
  - Palmar-plantar erythrodysaesthesia syndrome [Not Recovered/Not Resolved]
  - Burning feet syndrome [Not Recovered/Not Resolved]

NARRATIVE: CASE EVENT DATE: 20220201
